FAERS Safety Report 6974553-3 (Version None)
Quarter: 2010Q3

REPORT INFORMATION
  Report Type: 
  Country: None (occurrence: None)
  Receive Date: 20100909
  Receipt Date: 20081106
  Transmission Date: 20110219
  Serious: No
  Sender: FDA-Public Use
  Company Number: US-WYE-H06384408

PATIENT
  Sex: Female
  Weight: 81.72 kg

DRUGS (3)
  1. PROTONIX [Suspect]
     Indication: GASTRIC ULCER
     Route: 048
     Dates: start: 20080301
  2. NYSTATIN [Concomitant]
  3. AMBIEN [Concomitant]

REACTIONS (9)
  - BLISTER [None]
  - GLOSSODYNIA [None]
  - LOCAL SWELLING [None]
  - LYMPHADENOPATHY [None]
  - OROPHARYNGEAL PAIN [None]
  - PAIN [None]
  - RASH PRURITIC [None]
  - SKIN DISCOLOURATION [None]
  - SKIN EXFOLIATION [None]
